FAERS Safety Report 7690992-X (Version None)
Quarter: 2011Q3

REPORT INFORMATION
  Report Type: 
  Country: None (occurrence: None)
  Receive Date: 20110812
  Receipt Date: 20110812
  Transmission Date: 20111222
  Serious: Yes (Hospitalization)
  Sender: FDA-Public Use
  Company Number: None

PATIENT
  Sex: Female
  Weight: 47.2 kg

DRUGS (2)
  1. CARVEDILOL [Suspect]
     Dosage: 25 MG X6 DOSES PO
     Route: 048
     Dates: start: 20110810, end: 20110811
  2. ATIVAN [Suspect]
     Indication: CONVULSION
     Dosage: NOT TAKEN

REACTIONS (6)
  - BRADYCARDIA [None]
  - CONVULSION [None]
  - DRUG DISPENSING ERROR [None]
  - ACCIDENTAL OVERDOSE [None]
  - HYPOTENSION [None]
  - MEDICATION ERROR [None]
